FAERS Safety Report 12292585 (Version 1)
Quarter: 2016Q2

REPORT INFORMATION
  Report Type: Spontaneous
  Country: JP (occurrence: JP)
  Receive Date: 20160421
  Receipt Date: 20160421
  Transmission Date: 20160815
  Serious: Yes (Hospitalization, Other)
  Sender: FDA-Public Use
  Company Number: JP-MYLANLABS-2016M1016157

PATIENT

DRUGS (2)
  1. CARBOPLATIN MYLAN [Suspect]
     Active Substance: CARBOPLATIN
     Indication: OVARIAN CANCER
     Dosage: UNK, CYCLE
     Route: 041
     Dates: start: 201603
  2. PACLITAXEL. [Suspect]
     Active Substance: PACLITAXEL
     Indication: OVARIAN CANCER
     Dosage: UNK UNK, CYCLE
     Route: 041

REACTIONS (4)
  - Altered state of consciousness [Recovered/Resolved]
  - Febrile neutropenia [Recovered/Resolved]
  - Renal disorder [Unknown]
  - Epilepsy [Recovered/Resolved]
